FAERS Safety Report 6174602-9 (Version None)
Quarter: 2009Q2

REPORT INFORMATION
  Report Type: 
  Country: None (occurrence: None)
  Receive Date: 20090430
  Receipt Date: 20080829
  Transmission Date: 20091009
  Serious: No
  Sender: FDA-Public Use
  Company Number: US-ASTRAZENECA-2008UW16555

PATIENT
  Age: 59 Year
  Sex: Female

DRUGS (7)
  1. NEXIUM [Suspect]
     Indication: GASTROOESOPHAGEAL REFLUX DISEASE
     Route: 048
     Dates: start: 20080807
  2. NEXIUM [Suspect]
     Indication: GASTRITIS
     Route: 048
     Dates: start: 20080807
  3. MYLANTA [Concomitant]
  4. TUMS [Concomitant]
  5. ZANTAC [Concomitant]
     Dosage: 150MG
  6. PEPCID [Concomitant]
  7. ACIPHEX [Concomitant]

REACTIONS (9)
  - ADVERSE EVENT [None]
  - BURN OESOPHAGEAL [None]
  - CHEST DISCOMFORT [None]
  - DIARRHOEA [None]
  - FEELING ABNORMAL [None]
  - HEPATIC ENZYME INCREASED [None]
  - MALAISE [None]
  - NAUSEA [None]
  - VAGUS NERVE DISORDER [None]
